FAERS Safety Report 6249781-5 (Version None)
Quarter: 2009Q2

REPORT INFORMATION
  Report Type: 
  Country: None (occurrence: None)
  Receive Date: 20090629
  Receipt Date: 20090624
  Transmission Date: 20091009
  Serious: Yes (Life-Threatening, Hospitalization)
  Sender: FDA-Public Use
  Company Number: AT-WYE-G03755409

PATIENT
  Sex: Female
  Weight: 50 kg

DRUGS (1)
  1. TYGACIL [Suspect]
     Indication: LIVER ABSCESS
     Route: 042
     Dates: start: 20090423, end: 20090518

REACTIONS (1)
  - KLEBSIELLA SEPSIS [None]
